FAERS Safety Report 5378469-8 (Version None)
Quarter: 2007Q3

REPORT INFORMATION
  Report Type: 
  Country: None (occurrence: None)
  Receive Date: 20070705
  Receipt Date: 20070628
  Transmission Date: 20080115
  Serious: Yes (Hospitalization)
  Sender: FDA-Public Use
  Company Number: FR-AVENTIS-200613197FR

PATIENT
  Age: 34 Year
  Sex: Female
  Weight: 56 kg

DRUGS (2)
  1. FLAGYL [Suspect]
     Route: 048
     Dates: start: 20060912, end: 20060919
  2. FLAGYL [Suspect]
     Route: 048
     Dates: start: 20060920, end: 20060923

REACTIONS (1)
  - GESTATIONAL DIABETES [None]
